FAERS Safety Report 10174841 (Version 1)
Quarter: 2014Q2

REPORT INFORMATION
  Report Type: Spontaneous
  Country: US (occurrence: US)
  Receive Date: 20140515
  Receipt Date: 20140515
  Transmission Date: 20141212
  Serious: No
  Sender: FDA-Public Use
  Company Number: US-PFIZER INC-2014130492

PATIENT
  Sex: Female
  Weight: 81.18 kg

DRUGS (3)
  1. FELDENE [Suspect]
     Dosage: UNK
  2. NEOMYCIN SULFATE [Suspect]
     Dosage: UNK
  3. TOPICAL IODINE [Suspect]
     Dosage: UNK
     Route: 061

REACTIONS (1)
  - Drug hypersensitivity [Unknown]
